FAERS Safety Report 22304097 (Version 1)
Quarter: 2023Q2

REPORT INFORMATION
  Report Type: Spontaneous
  Country: US (occurrence: None)
  Receive Date: 20230509
  Receipt Date: 20230509
  Transmission Date: 20230722
  Serious: Yes (unspecified)
  Sender: FDA-Public Use
  Company Number: None

PATIENT
  Age: 11 Month
  Sex: Female
  Weight: 9 kg

DRUGS (3)
  1. SULFAMETHOXAZOLE\TRIAMTERENE [Suspect]
     Active Substance: SULFAMETHOXAZOLE\TRIAMTERENE
     Indication: Ear infection
     Dates: start: 20221223, end: 20221229
  2. MIRALAX [Concomitant]
     Active Substance: POLYETHYLENE GLYCOL 3350
  3. ZYRTEC [Concomitant]
     Active Substance: CETIRIZINE HYDROCHLORIDE

REACTIONS (4)
  - Decreased appetite [None]
  - Dehydration [None]
  - Vomiting [None]
  - Diarrhoea [None]

NARRATIVE: CASE EVENT DATE: 20221229
